FAERS Safety Report 6910614-2 (Version None)
Quarter: 2010Q3

REPORT INFORMATION
  Report Type: 
  Country: None (occurrence: None)
  Receive Date: 20100806
  Receipt Date: 20100727
  Transmission Date: 20110219
  Serious: Yes (Disabling)
  Sender: FDA-Public Use
  Company Number: US-BRISTOL-MYERS SQUIBB COMPANY-15225386

PATIENT
  Age: 58 Year
  Sex: Female
  Weight: 56 kg

DRUGS (5)
  1. CORGARD [Suspect]
     Indication: HYPERTENSION
     Dosage: INTERRUPTED ON:2010.RESTART ON;07/2010
     Route: 048
     Dates: start: 19900101
  2. CORGARD [Suspect]
     Indication: MIGRAINE
     Dosage: INTERRUPTED ON:2010.RESTART ON;07/2010
     Route: 048
     Dates: start: 19900101
  3. PROGESTERONE [Concomitant]
  4. MULTI-VITAMIN [Concomitant]
  5. CALCIUM [Concomitant]

REACTIONS (2)
  - BRONCHIECTASIS [None]
  - CORNEAL DYSTROPHY [None]
